FAERS Safety Report 25939815 (Version 1)
Quarter: 2025Q4

REPORT INFORMATION
  Report Type: Report from Study
  Country: US (occurrence: US)
  Receive Date: 20251020
  Receipt Date: 20251020
  Transmission Date: 20260118
  Serious: Yes (Other)
  Sender: ALEXION PHARMACEUTICALS
  Company Number: US-AstraZeneca-CH-00971959A

PATIENT
  Sex: Female

DRUGS (1)
  1. CAPIVASERTIB [Suspect]
     Active Substance: CAPIVASERTIB
     Indication: Neoplasm malignant
     Dosage: UNK

REACTIONS (4)
  - Diabetes mellitus [Unknown]
  - Product dose omission issue [Unknown]
  - Anaemia [Unknown]
  - Fatigue [Unknown]
